FAERS Safety Report 8672926 (Version 2)
Quarter: 2012Q4

REPORT INFORMATION
  Report Type: 
  Country: US (occurrence: US)
  Receive Date: 20120719
  Receipt Date: 20121109
  Transmission Date: 20130627
  Serious: Yes (Other)
  Sender: FDA-Public Use
  Company Number: US-PFIZER INC-2012171544

PATIENT
  Age: 51 Year
  Sex: Female
  Weight: 41 kg

DRUGS (2)
  1. NEURONTIN [Suspect]
     Dosage: 1200mg in morning and 800mg at night
     Dates: start: 20111018, end: 201110
  2. NEURONTIN [Suspect]
     Dosage: UNK
     Dates: start: 201202

REACTIONS (1)
  - Gastric polyps [Unknown]
